FAERS Safety Report 5188145-2 (Version None)
Quarter: 2006Q4

REPORT INFORMATION
  Report Type: 
  Country: None (occurrence: None)
  Receive Date: 20061221
  Receipt Date: 20060831
  Transmission Date: 20070319
  Serious: Yes (Other)
  Sender: FDA-Public Use
  Company Number: 2006AP04364

PATIENT
  Age: 52 Year
  Sex: Male

DRUGS (10)
  1. IRESSA [Suspect]
     Indication: LUNG ADENOCARCINOMA STAGE IV
     Route: 048
     Dates: start: 20060712, end: 20060827
  2. IRESSA [Suspect]
     Indication: NON-SMALL CELL LUNG CANCER STAGE IV
     Route: 048
     Dates: start: 20060712, end: 20060827
  3. IRESSA [Suspect]
     Route: 048
     Dates: start: 20060907
  4. IRESSA [Suspect]
     Route: 048
     Dates: start: 20060907
  5. RADIOTHERAPY [Concomitant]
  6. CARBOPLATIN [Concomitant]
  7. GEMCITABINE [Concomitant]
  8. DOCETAXEL [Concomitant]
     Dosage: 1/2 COURSES
  9. VINORELBINE [Concomitant]
     Dosage: 1/2 COURSES
  10. PACLITAXEL [Concomitant]
     Dosage: 1/2 COURSES

REACTIONS (3)
  - PNEUMOTHORAX [None]
  - RASH [None]
  - SKIN ULCER [None]
